FAERS Safety Report 9558376 (Version 4)
Quarter: 2015Q4

REPORT INFORMATION
  Report Type: Report from Study
  Country: US (occurrence: US)
  Receive Date: 20130926
  Receipt Date: 20151029
  Transmission Date: 20160305
  Serious: Yes (Other)
  Sender: FDA-Public Use
  Company Number: US-ROCHE-1262023

PATIENT
  Age: 59 Year
  Sex: Female

DRUGS (9)
  1. LUCENTIS [Suspect]
     Active Substance: RANIBIZUMAB
     Indication: INTRAOCULAR LENS IMPLANT
     Dosage: BOTH EYES
     Route: 050
     Dates: start: 20130625
  2. AVASTIN [Suspect]
     Active Substance: BEVACIZUMAB
     Indication: DIABETIC RETINAL OEDEMA
     Route: 065
     Dates: start: 20110302
  3. AVASTIN [Suspect]
     Active Substance: BEVACIZUMAB
     Indication: DIABETIC RETINOPATHY
     Route: 065
     Dates: start: 20111201
  4. AVAPRO [Concomitant]
     Active Substance: IRBESARTAN
     Route: 065
  5. LUCENTIS [Suspect]
     Active Substance: RANIBIZUMAB
     Indication: DIABETIC RETINOPATHY
     Dosage: BOTH EYES
     Route: 050
     Dates: start: 20130430
  6. CINNAMON. [Concomitant]
     Active Substance: CINNAMON
     Route: 065
  7. COREG [Concomitant]
     Active Substance: CARVEDILOL
     Route: 065
  8. LEVEMIR [Concomitant]
     Active Substance: INSULIN DETEMIR
     Dosage: UNITS/ML
     Route: 065
  9. LUCENTIS [Suspect]
     Active Substance: RANIBIZUMAB
     Indication: DIABETIC RETINAL OEDEMA
     Dosage: BOTH EYES
     Route: 050
     Dates: start: 20130529

REACTIONS (5)
  - Retinal haemorrhage [Unknown]
  - Macular oedema [Unknown]
  - Retinal exudates [Unknown]
  - Vision blurred [Unknown]
  - Visual impairment [Unknown]

NARRATIVE: CASE EVENT DATE: 20130903
